FAERS Safety Report 8475507-0 (Version None)
Quarter: 2012Q2

REPORT INFORMATION
  Report Type: 
  Country: None (occurrence: None)
  Receive Date: 20120628
  Receipt Date: 20100804
  Transmission Date: 20120825
  Serious: Yes (Disabling)
  Sender: FDA-Public Use
  Company Number: BR-ROCHE-719682

PATIENT
  Sex: Male
  Weight: 78 kg

DRUGS (1)
  1. ISOTRETINOIN [Suspect]
     Indication: ACNE
     Dosage: OTHER INDICATION:SKIN OILY, ONE TABLET ON TUESDAYS AND ONE TABLET ON FRIDAYS.
     Route: 048
     Dates: start: 20080801, end: 20100804

REACTIONS (2)
  - SEMEN VOLUME DECREASED [None]
  - INFERTILITY [None]
